FAERS Safety Report 8434854-9 (Version None)
Quarter: 2012Q2

REPORT INFORMATION
  Report Type: 
  Country: None (occurrence: None)
  Receive Date: 20120614
  Receipt Date: 20120606
  Transmission Date: 20120825
  Serious: Yes (Hospitalization)
  Sender: FDA-Public Use
  Company Number: US-BAYER-2012-040213

PATIENT
  Age: 43 Year
  Sex: Female
  Weight: 57.596 kg

DRUGS (3)
  1. YASMIN [Suspect]
     Dosage: UNK
     Dates: start: 20021101, end: 20080916
  2. DROSPIRENONE AND ETHINYL ESTRADIOL [Suspect]
     Dosage: UNK
     Dates: start: 20080917, end: 20110701
  3. SYNTHROID [Concomitant]
     Dosage: UNK
     Route: 048
     Dates: start: 19870101

REACTIONS (1)
  - DEEP VEIN THROMBOSIS [None]
